FAERS Safety Report 23516484 (Version 1)
Quarter: 2024Q1

REPORT INFORMATION
  Report Type: Spontaneous
  Country: GB (occurrence: GB)
  Receive Date: 20240213
  Receipt Date: 20240213
  Transmission Date: 20240410
  Serious: Yes (Other)
  Sender: FDA-Public Use
  Company Number: GB-002147023-NVSC2024GB024150

PATIENT
  Age: 74 Year
  Sex: Male

DRUGS (3)
  1. IMATINIB [Suspect]
     Active Substance: IMATINIB
     Indication: Product used for unknown indication
     Dosage: UNK
     Route: 065
  2. ASCIMINIB [Suspect]
     Active Substance: ASCIMINIB
     Indication: Product used for unknown indication
     Dosage: UNK
     Route: 065
  3. DASATINIB [Suspect]
     Active Substance: DASATINIB
     Indication: Product used for unknown indication
     Dosage: UNK
     Route: 065

REACTIONS (10)
  - Renal impairment [Unknown]
  - Thrombocytopenia [Unknown]
  - Anaemia [Unknown]
  - Constipation [Unknown]
  - Diarrhoea [Unknown]
  - Headache [Unknown]
  - Abdominal pain [Unknown]
  - Pleural effusion [Unknown]
  - Rash [Unknown]
  - Abdominal distension [Unknown]
